FAERS Safety Report 25023551 (Version 1)
Quarter: 2025Q1

REPORT INFORMATION
  Report Type: Spontaneous
  Country: US (occurrence: US)
  Receive Date: 20250228
  Receipt Date: 20250228
  Transmission Date: 20250409
  Serious: No
  Sender: TEVA
  Company Number: US-TEVA-VS-3296856

PATIENT
  Age: 71 Year
  Sex: Female

DRUGS (1)
  1. ALPRAZOLAM [Suspect]
     Active Substance: ALPRAZOLAM
     Indication: Psychotherapy
     Route: 048

REACTIONS (3)
  - Drug hypersensitivity [Unknown]
  - Psychomotor hyperactivity [Unknown]
  - Paradoxical drug reaction [Unknown]
